FAERS Safety Report 8800474 (Version 2)
Quarter: 2015Q1

REPORT INFORMATION
  Report Type: Report from Study
  Country: US (occurrence: US)
  Receive Date: 20120921
  Receipt Date: 20150129
  Transmission Date: 20150721
  Serious: Yes (Death, Other)
  Sender: FDA-Public Use
  Company Number: US-ROCHE-1102970

PATIENT
  Sex: Male
  Weight: 82.6 kg

DRUGS (22)
  1. PERCOCET [Concomitant]
     Active Substance: ACETAMINOPHEN\OXYCODONE HYDROCHLORIDE
     Indication: PAIN
     Dosage: FOR EVERY 3 HRS AS NEEDED
     Route: 048
     Dates: start: 20100215, end: 20100301
  2. ALLOPURINOL. [Concomitant]
     Active Substance: ALLOPURINOL
     Route: 048
     Dates: start: 20100129
  3. MEGACE SUSPENSION [Concomitant]
     Dosage: 40 MG/ML
     Route: 048
     Dates: start: 20091229, end: 20100129
  4. VICODIN [Concomitant]
     Active Substance: ACETAMINOPHEN\HYDROCODONE BITARTRATE
     Indication: PAIN
     Dosage: 1-2 TIMES PER DAY AS NEEDED FOR PAIN
     Route: 048
     Dates: start: 20091102, end: 20100129
  5. FOLIC ACID. [Concomitant]
     Active Substance: FOLIC ACID
     Route: 048
     Dates: start: 20100128
  6. AVASTIN [Suspect]
     Active Substance: BEVACIZUMAB
     Indication: NEOPLASM MALIGNANT
     Dosage: 15 MG/KG X 89.6 KG (PLANNED) ONCE
     Route: 042
     Dates: start: 20100105, end: 20100105
  7. PARAPLATIN [Concomitant]
     Active Substance: CARBOPLATIN
     Dosage: ONCE
     Route: 042
     Dates: start: 20100105, end: 20100105
  8. VITAMIN B12 [Concomitant]
     Active Substance: CYANOCOBALAMIN
     Dosage: ONCE
     Route: 030
     Dates: start: 20100105, end: 20100105
  9. GUAIFENESIN. [Concomitant]
     Active Substance: GUAIFENESIN
     Dosage: AT BED TIME
     Route: 048
     Dates: start: 20100129
  10. NEULASTA [Suspect]
     Active Substance: PEGFILGRASTIM
     Indication: PRODUCT USED FOR UNKNOWN INDICATION
     Route: 065
  11. DECADRON [Concomitant]
     Active Substance: DEXAMETHASONE
     Dosage: ONCE
     Route: 042
     Dates: start: 20100105, end: 20100105
  12. BENADRYL [Concomitant]
     Active Substance: DIPHENHYDRAMINE HYDROCHLORIDE
     Dosage: ONCE
     Route: 042
     Dates: start: 20100105, end: 20100105
  13. ZANTAC [Concomitant]
     Active Substance: RANITIDINE HYDROCHLORIDE
     Dosage: IN 0.45% SODIUM CHLORIDE 50 ML (PREMIX), ONCE
     Route: 042
     Dates: start: 20100105, end: 20100105
  14. SENOKOT [Concomitant]
     Active Substance: SENNOSIDES
     Dosage: 2 TABLETS AT BED TIME
     Route: 048
     Dates: start: 20100129
  15. DULCOLAX TABLET [Concomitant]
     Indication: CONSTIPATION
     Route: 048
     Dates: start: 20100128
  16. AVASTIN [Suspect]
     Active Substance: BEVACIZUMAB
     Indication: ADENOCARCINOMA
  17. TENORMIN [Concomitant]
     Active Substance: ATENOLOL
     Route: 048
     Dates: start: 20091107
  18. NAPROSYN [Suspect]
     Active Substance: NAPROXEN
     Indication: PRODUCT USED FOR UNKNOWN INDICATION
     Route: 048
     Dates: start: 20090908
  19. ALOXI [Concomitant]
     Active Substance: PALONOSETRON HYDROCHLORIDE
     Dosage: ONCE
     Route: 042
     Dates: start: 20100105, end: 20100105
  20. NORVASC [Concomitant]
     Active Substance: AMLODIPINE BESYLATE
     Dosage: 4 TABLETS DAILY
     Route: 048
     Dates: start: 20091107
  21. NEURONTIN [Concomitant]
     Active Substance: GABAPENTIN
     Route: 048
     Dates: start: 20100204
  22. TAXOL [Concomitant]
     Active Substance: PACLITAXEL
     Dosage: 200 MG/M2 X 2.16 M2 (PLANNED), ONCE
     Route: 042
     Dates: start: 20100105, end: 20100105

REACTIONS (10)
  - Death [Fatal]
  - Fatigue [Unknown]
  - Tachycardia [Unknown]
  - Folate deficiency [Unknown]
  - Anaemia vitamin B12 deficiency [Unknown]
  - Hypoxia [Unknown]
  - Leukocytosis [Unknown]
  - Weight decreased [Unknown]
  - Dehydration [Unknown]
  - Pancytopenia [Unknown]
